FAERS Safety Report 18910879 (Version 2)
Quarter: 2021Q1

REPORT INFORMATION
  Report Type: Spontaneous
  Country: PT (occurrence: PT)
  Receive Date: 20210218
  Receipt Date: 20210222
  Transmission Date: 20210420
  Serious: Yes (Hospitalization, Other)
  Sender: FDA-Public Use
  Company Number: NVSC2021PT036929

PATIENT
  Age: 71 Year
  Sex: Male

DRUGS (1)
  1. AMOXICILLIN TRIHYDRATE,POTASSIUM CLAVULANATE [Suspect]
     Active Substance: AMOXICILLIN\CLAVULANATE POTASSIUM
     Indication: RESPIRATORY TRACT INFECTION
     Dosage: 875/125 MG STRENGTH TWICE A DAY AT INTERVAL OF 1 DAY
     Route: 065

REACTIONS (8)
  - Pruritus [Unknown]
  - Deficiency of bile secretion [Unknown]
  - Jaundice [Unknown]
  - Rash [Unknown]
  - Choluria [Unknown]
  - Hyperbilirubinaemia [Unknown]
  - Drug-induced liver injury [Recovered/Resolved]
  - Cholestasis [Unknown]
